FAERS Safety Report 5410780-4 (Version None)
Quarter: 2007Q3

REPORT INFORMATION
  Report Type: 
  Country: None (occurrence: None)
  Receive Date: 20070810
  Receipt Date: 20070503
  Transmission Date: 20080115
  Serious: No
  Sender: FDA-Public Use
  Company Number: A0648006A

PATIENT
  Age: 85 Year
  Sex: Female

DRUGS (11)
  1. PAXIL CR [Suspect]
     Indication: DEPRESSION
     Dosage: 25MG PER DAY
     Route: 048
     Dates: start: 20060309, end: 20070409
  2. POTASSIUM HCL [Concomitant]
  3. LEVOTHYROXINE SODIUM [Concomitant]
  4. BISOPROLOL FUMARATE AND HYDROCHLOROTHIAZIDE [Concomitant]
  5. DIPYRIDAMOLE [Concomitant]
  6. NORVASC [Concomitant]
  7. HYDRALAZINE HCL [Concomitant]
  8. CYANOCOBALAMIN [Concomitant]
  9. ASPIRIN [Concomitant]
  10. PROPOXYPHENE NAPSYLATE AND ACETAMINOPHEN [Concomitant]
  11. TYLENOL (CAPLET) [Concomitant]

REACTIONS (3)
  - ABDOMINAL PAIN UPPER [None]
  - DIARRHOEA [None]
  - NAUSEA [None]
